FAERS Safety Report 6156725-3 (Version None)
Quarter: 2009Q2

REPORT INFORMATION
  Report Type: 
  Country: None (occurrence: None)
  Receive Date: 20090416
  Receipt Date: 20090414
  Transmission Date: 20091009
  Serious: Yes (Other)
  Sender: FDA-Public Use
  Company Number: US-ROXANE LABORATORIES, INC.-2009-DE-00032GD

PATIENT
  Age: 64 Year
  Sex: Female
  Weight: 54.885 kg

DRUGS (4)
  1. MORPHINE [Suspect]
     Indication: BACK PAIN
     Dosage: 6.3 MG/DAY (CONC: 0.5 MG/ML INFUSED AT 0.5 ML/HR, AVG. 3 BOLUSES 0.2 ML/DAY)
     Route: 008
  2. MORPHINE [Suspect]
     Indication: PAIN IN EXTREMITY
  3. GABAPENTIN [Concomitant]
     Dosage: 2400MG
  4. BACLOFEN [Concomitant]
     Dosage: 10MG

REACTIONS (2)
  - OEDEMA PERIPHERAL [None]
  - WEIGHT INCREASED [None]
